FAERS Safety Report 7770139-1 (Version None)
Quarter: 2011Q3

REPORT INFORMATION
  Report Type: 
  Country: None (occurrence: None)
  Receive Date: 20110922
  Receipt Date: 20110223
  Transmission Date: 20111222
  Serious: No
  Sender: FDA-Public Use
  Company Number: US-ASTRAZENECA-2010SE58252

PATIENT
  Age: 52 Year
  Sex: Female
  Weight: 81.6 kg

DRUGS (3)
  1. SEROQUEL [Suspect]
     Dosage: SHE TAKES AN EXTRA 400 MG TABLET EVERY ONCE IN A WHILE
     Route: 048
     Dates: start: 20100901
  2. CARBAMAZEPINE [Concomitant]
     Indication: MOOD ALTERED
  3. SEROQUEL [Suspect]
     Indication: BIPOLAR DISORDER
     Route: 048
     Dates: start: 20090101, end: 20100101

REACTIONS (7)
  - FEELING ABNORMAL [None]
  - DRUG DOSE OMISSION [None]
  - HALLUCINATION [None]
  - SLEEP DISORDER [None]
  - INCORRECT DOSE ADMINISTERED [None]
  - INSOMNIA [None]
  - MANIA [None]
